FAERS Safety Report 11038255 (Version 1)
Quarter: 2015Q2

REPORT INFORMATION
  Report Type: Spontaneous
  Country: IE (occurrence: IE)
  Receive Date: 20150416
  Receipt Date: 20150416
  Transmission Date: 20150821
  Serious: Yes (Other)
  Sender: FDA-Public Use
  Company Number: IE-ACTELION-A-CH2014-98798

PATIENT
  Age: 50 Year
  Sex: Female

DRUGS (1)
  1. TRACLEER [Suspect]
     Active Substance: BOSENTAN\BOSENTAN MONOHYDRATE
     Indication: PULMONARY ARTERIAL HYPERTENSION
     Dosage: 125 MG, BID
     Route: 048
     Dates: start: 20060320, end: 20090428

REACTIONS (3)
  - Drug-induced liver injury [Unknown]
  - Hepatic necrosis [Unknown]
  - Biopsy liver [Unknown]

NARRATIVE: CASE EVENT DATE: 2009
